FAERS Safety Report 8024396-7 (Version None)
Quarter: 2012Q1

REPORT INFORMATION
  Report Type: 
  Country: None (occurrence: None)
  Receive Date: 20120105
  Receipt Date: 20120105
  Transmission Date: 20120608
  Serious: Yes (Hospitalization)
  Sender: FDA-Public Use
  Company Number: None

PATIENT
  Age: 51 Year
  Sex: Female
  Weight: 56.699 kg

DRUGS (1)
  1. XEOMIN [Suspect]
     Indication: SKIN WRINKLING
     Dates: start: 20111219, end: 20111219

REACTIONS (4)
  - DYSPHAGIA [None]
  - PAIN IN JAW [None]
  - PAIN IN EXTREMITY [None]
  - HEADACHE [None]
